FAERS Safety Report 7091421-X (Version None)
Quarter: 2010Q4

REPORT INFORMATION
  Report Type: 
  Country: None (occurrence: None)
  Receive Date: 20101109
  Receipt Date: 20101104
  Transmission Date: 20110411
  Serious: Yes (Disabling)
  Sender: FDA-Public Use
  Company Number: D0069233A

PATIENT
  Sex: Male

DRUGS (1)
  1. ATMADISC [Suspect]
     Dosage: 300MCG TWICE PER DAY
     Route: 055
     Dates: start: 20100501

REACTIONS (6)
  - ADVERSE EVENT [None]
  - ARTHRALGIA [None]
  - ARTHRITIS [None]
  - JOINT RANGE OF MOTION DECREASED [None]
  - RHEUMATOID ARTHRITIS [None]
  - SWELLING [None]
